FAERS Safety Report 20703940 (Version 1)
Quarter: 2022Q2

REPORT INFORMATION
  Report Type: Report from Study
  Country: SA (occurrence: SA)
  Receive Date: 20220413
  Receipt Date: 20220413
  Transmission Date: 20220721
  Serious: Yes (Other)
  Sender: FDA-Public Use
  Company Number: SA-JNJFOC-20220411052

PATIENT

DRUGS (3)
  1. REMICADE [Suspect]
     Active Substance: INFLIXIMAB
     Indication: Sarcoidosis
     Dosage: 3 TO 5 MG/KG DOSE AT 0, 2, AND 6 WEEKS. AFTER THIS, INFLIXIMAB WAS ADMINISTERED EVERY 4 TO 8 WEEKS
     Route: 042
  2. REMICADE [Suspect]
     Active Substance: INFLIXIMAB
     Indication: Uveitis
  3. REMICADE [Suspect]
     Active Substance: INFLIXIMAB
     Indication: Arthritis

REACTIONS (16)
  - Cutaneous sarcoidosis [Unknown]
  - Cholecystitis [Unknown]
  - Anaphylactic reaction [Unknown]
  - Pneumonia [Unknown]
  - Leukopenia [Unknown]
  - Cellulitis [Unknown]
  - Paraesthesia [Unknown]
  - Asthma [Unknown]
  - Sinusitis [Unknown]
  - Infusion related reaction [Unknown]
  - Chest pain [Unknown]
  - Headache [Unknown]
  - Therapeutic response unexpected [Unknown]
  - Infection [Unknown]
  - Off label use [Unknown]
  - Product use in unapproved indication [Unknown]
